FAERS Safety Report 8071048-3 (Version None)
Quarter: 2012Q1

REPORT INFORMATION
  Report Type: 
  Country: None (occurrence: None)
  Receive Date: 20120125
  Receipt Date: 20120117
  Transmission Date: 20120608
  Serious: Yes (Other)
  Sender: FDA-Public Use
  Company Number: US-PFIZER INC-2012013444

PATIENT
  Sex: Male
  Weight: 74.83 kg

DRUGS (3)
  1. CHAPSTICK CLASSIC [Suspect]
     Indication: CHAPPED LIPS
     Dosage: UNK
     Dates: end: 20120101
  2. CAPTOPRIL [Concomitant]
     Indication: BLOOD PRESSURE MANAGEMENT
     Dosage: UNK
  3. CHAPSTICK LIPMOISTURIZER [Suspect]
     Indication: CHAPPED LIPS
     Dosage: UNK
     Dates: end: 20120101

REACTIONS (5)
  - APPLICATION SITE ERYTHEMA [None]
  - APPLICATION SITE HYPERSENSITIVITY [None]
  - APPLICATION SITE SWELLING [None]
  - APPLICATION SITE PRURITUS [None]
  - APPLICATION SITE IRRITATION [None]
